FAERS Safety Report 7298129-6 (Version None)
Quarter: 2011Q1

REPORT INFORMATION
  Report Type: 
  Country: None (occurrence: None)
  Receive Date: 20110217
  Receipt Date: 20110208
  Transmission Date: 20110831
  Serious: Yes (Disabling, Other)
  Sender: FDA-Public Use
  Company Number: JP-ASTELLAS-2010JP007344

PATIENT
  Sex: Male
  Weight: 35.7 kg

DRUGS (11)
  1. MEROPENEM [Suspect]
     Indication: PNEUMONIA BACTERIAL
     Dosage: 0.5 G, BID
     Route: 042
     Dates: start: 20101121, end: 20101201
  2. UNASYN [Concomitant]
     Indication: PNEUMONIA BACTERIAL
     Dosage: 1.5 G, BID
     Route: 042
     Dates: start: 20101120, end: 20101121
  3. FUNGUARD [Suspect]
     Dosage: 10 MG, UID/QD
     Route: 041
     Dates: start: 20101208, end: 20101210
  4. FUNGUARD [Suspect]
     Indication: FUNGAL INFECTION
     Dosage: 50 MG, UID/QD
     Route: 041
     Dates: start: 20101125, end: 20101201
  5. ZYVOX [Concomitant]
     Dosage: UNK
     Route: 042
     Dates: start: 20101121, end: 20101201
  6. RECOMODULIN [Concomitant]
     Indication: DISSEMINATED INTRAVASCULAR COAGULATION
     Dosage: 12.8 KIU, UID/QD
     Route: 042
     Dates: start: 20101126, end: 20101204
  7. SOLDACTONE [Concomitant]
     Indication: OEDEMA
     Dosage: 100 MG, UID/QD
     Route: 042
     Dates: start: 20101126, end: 20101219
  8. VANCOMYCIN [Concomitant]
     Indication: STAPHYLOCOCCAL INFECTION
     Dosage: 1.5 G, UID/QD
     Route: 042
     Dates: start: 20101201, end: 20101204
  9. OMEPRAL [Suspect]
     Indication: HAEMORRHAGE PROPHYLAXIS
     Dosage: 20 MG, UID/QD
     Route: 042
     Dates: start: 20101125, end: 20101210
  10. FRAGMIN [Concomitant]
     Indication: DISSEMINATED INTRAVASCULAR COAGULATION
     Dosage: 5 KIU, CONTINUOUS
     Route: 041
     Dates: start: 20101124, end: 20101125
  11. LASIX [Concomitant]
     Indication: RENAL FAILURE ACUTE
     Dosage: 120 MG, CONTINUOUS
     Route: 041
     Dates: start: 20101121, end: 20101201

REACTIONS (3)
  - HAEMOLYTIC ANAEMIA [None]
  - HEPATIC FUNCTION ABNORMAL [None]
  - PANCYTOPENIA [None]
